FAERS Safety Report 7369934-2 (Version None)
Quarter: 2011Q1

REPORT INFORMATION
  Report Type: 
  Country: None (occurrence: None)
  Receive Date: 20110318
  Receipt Date: 20110318
  Transmission Date: 20110831
  Serious: Yes (Hospitalization)
  Sender: FDA-Public Use
  Company Number: None

PATIENT
  Sex: Male
  Weight: 86 kg

DRUGS (2)
  1. EVERLIMUS 5 MG NOVARTIS [Suspect]
     Indication: NON-HODGKIN'S LYMPHOMA
     Dosage: 5 MG DAILY PO
     Route: 048
     Dates: start: 20101102, end: 20110307
  2. BORTEZOMIB [Suspect]
     Indication: NON-HODGKIN'S LYMPHOMA
     Dosage: 1.4 MG DAYS 1, 4, 8, 11 IV
     Route: 042
     Dates: start: 20101102, end: 20110228

REACTIONS (5)
  - CHEST PAIN [None]
  - ISCHAEMIA [None]
  - DYSPNOEA EXERTIONAL [None]
  - ANAEMIA [None]
  - BLOOD CREATININE INCREASED [None]
